FAERS Safety Report 6071245-2 (Version None)
Quarter: 2009Q1

REPORT INFORMATION
  Report Type: 
  Country: None (occurrence: None)
  Receive Date: 20090209
  Receipt Date: 20090115
  Transmission Date: 20090719
  Serious: Yes (Hospitalization)
  Sender: FDA-Public Use
  Company Number: FR-WYE-H08127109

PATIENT
  Sex: Male

DRUGS (3)
  1. CORDARONE [Suspect]
     Indication: SUPRAVENTRICULAR TACHYCARDIA
     Dosage: 250 MG/2ML DAILY
     Route: 048
     Dates: start: 20071006, end: 20080822
  2. VITAMINS NOS [Concomitant]
     Dosage: DOSE UNKNOWN
     Route: 065
  3. DEPAKENE [Concomitant]
     Indication: CONVULSION NEONATAL
     Dosage: DOSE UNKNOWN
     Route: 065
     Dates: start: 20070101, end: 20080618

REACTIONS (1)
  - HYPERTHYROIDISM [None]
